FAERS Safety Report 13661325 (Version 1)
Quarter: 2017Q2

REPORT INFORMATION
  Report Type: Spontaneous
  Country: US (occurrence: US)
  Receive Date: 20170616
  Receipt Date: 20170616
  Transmission Date: 20170830
  Serious: No
  Sender: FDA-Public Use
  Company Number: US-US WORLDMEDS, LLC-USW201612-000920

PATIENT
  Age: 55 Year
  Sex: Male

DRUGS (6)
  1. TIGAN [Concomitant]
     Active Substance: TRIMETHOBENZAMIDE HYDROCHLORIDE
     Indication: NAUSEA
     Dates: start: 20161210
  2. QUETIAPINE FUMARATE. [Concomitant]
     Active Substance: QUETIAPINE FUMARATE
  3. APOKYN [Suspect]
     Active Substance: APOMORPHINE HYDROCHLORIDE
     Indication: PARKINSON^S DISEASE
     Route: 058
     Dates: start: 20161213
  4. CARVEDILOL. [Concomitant]
     Active Substance: CARVEDILOL
  5. MIRTAZAPINE. [Concomitant]
     Active Substance: MIRTAZAPINE
  6. LISINOPRIL HCTZ [Concomitant]
     Active Substance: HYDROCHLOROTHIAZIDE\LISINOPRIL

REACTIONS (2)
  - Somnolence [Recovered/Resolved]
  - Asthenopia [Recovered/Resolved]

NARRATIVE: CASE EVENT DATE: 20161213
